FAERS Safety Report 5068368-3 (Version None)
Quarter: 2006Q3

REPORT INFORMATION
  Report Type: 
  Country: None (occurrence: None)
  Receive Date: 20060802
  Receipt Date: 20050823
  Transmission Date: 20061208
  Serious: No
  Sender: FDA-Public Use
  Company Number: US-BRISTOL-MYERS SQUIBB COMPANY-13087531

PATIENT
  Age: 70 Year
  Sex: Male
  Weight: 81 kg

DRUGS (7)
  1. COUMADIN [Suspect]
     Route: 048
     Dates: start: 20050621
  2. PERCOCET [Suspect]
     Indication: PAIN
     Route: 048
     Dates: start: 20050621
  3. LIPITOR [Suspect]
     Route: 048
     Dates: start: 20050621
  4. METOPROLOL [Suspect]
     Indication: BLOOD PRESSURE MANAGEMENT
     Route: 048
     Dates: start: 20050621
  5. PACERONE [Suspect]
     Indication: HEART RATE IRREGULAR
     Route: 048
     Dates: start: 20050621
  6. PREVACID [Suspect]
     Route: 048
     Dates: start: 20050621
  7. GLUCOPHAGE [Concomitant]
     Indication: DIABETES MELLITUS
     Route: 048
     Dates: start: 19800101

REACTIONS (1)
  - CONSTIPATION [None]
